FAERS Safety Report 5975683-5 (Version None)
Quarter: 2008Q4

REPORT INFORMATION
  Report Type: 
  Country: None (occurrence: None)
  Receive Date: 20081202
  Receipt Date: 20081124
  Transmission Date: 20090506
  Serious: Yes (Other)
  Sender: FDA-Public Use
  Company Number: PHHY2008GB29966

PATIENT
  Sex: Female

DRUGS (1)
  1. CARBAMAZEPINE [Suspect]

REACTIONS (10)
  - APLASTIC ANAEMIA [None]
  - ARTHRALGIA [None]
  - CONSTIPATION [None]
  - DYSGEUSIA [None]
  - DYSPEPSIA [None]
  - HYPERSENSITIVITY [None]
  - LOSS OF LIBIDO [None]
  - MUSCLE SPASMS [None]
  - MYALGIA [None]
  - TINNITUS [None]
